FAERS Safety Report 20059477 (Version 1)
Quarter: 2021Q4

REPORT INFORMATION
  Report Type: Report from Study
  Country: US (occurrence: US)
  Receive Date: 20211111
  Receipt Date: 20211111
  Transmission Date: 20220304
  Serious: Yes (Hospitalization)
  Sender: FDA-Public Use
  Company Number: US-MYLANLABS-2021M1081402

PATIENT
  Age: 70 Year
  Sex: Female

DRUGS (6)
  1. PEGFILGRASTIM [Suspect]
     Active Substance: PEGFILGRASTIM
     Indication: Acute lymphocytic leukaemia
     Dosage: 6 MILLIGRAM (ON DAY 4 UNTIL RECOVERY OF GRANULOCYTE COUNT)
     Route: 058
  2. CYTARABINE [Suspect]
     Active Substance: CYTARABINE
     Indication: Acute lymphocytic leukaemia
     Dosage: 0.5 G/M2 OVER 3 HOURS TWICE A DAY X 4 DOSES ON DAYS 2 AND 3
     Route: 042
  3. INOTUZUMAB OZOGAMICIN [Suspect]
     Active Substance: INOTUZUMAB OZOGAMICIN
     Indication: Acute lymphocytic leukaemia
     Dosage: 0.3 MG/M2, ON DAYS 2 AND 8 OF CYCLE 2 (APPROXIMATE)
     Route: 042
     Dates: start: 20210711
  4. METHOTREXATE SODIUM [Suspect]
     Active Substance: METHOTREXATE SODIUM
     Indication: Acute lymphocytic leukaemia
     Dosage: 50 MG/M2, OVER 2HRS ON DAY 1
     Route: 042
  5. METHOTREXATE SODIUM [Suspect]
     Active Substance: METHOTREXATE SODIUM
     Dosage: AT 200 MG/M2, CONTINUOUS INFUSION OVER 22 HOURS ON DAY 1
     Route: 042
  6. RITUXIMAB [Suspect]
     Active Substance: RITUXIMAB
     Indication: Acute lymphocytic leukaemia
     Dosage: 375 MG/M2, ON DAY 2 AND 8 OF CYCLE 2
     Route: 042

REACTIONS (1)
  - Febrile neutropenia [Recovered/Resolved]

NARRATIVE: CASE EVENT DATE: 20210814
